FAERS Safety Report 19695240 (Version 1)
Quarter: 2021Q3

REPORT INFORMATION
  Report Type: Spontaneous
  Country: CA (occurrence: CA)
  Receive Date: 20210812
  Receipt Date: 20210812
  Transmission Date: 20211014
  Serious: Yes (Other)
  Sender: FDA-Public Use
  Company Number: CA-BIOMARINAP-CA-2021-138035

PATIENT
  Age: 42 Year
  Sex: Male
  Weight: 48.6 kg

DRUGS (6)
  1. VIMIZIM [Suspect]
     Active Substance: ELOSULFASE ALFA
     Indication: MUCOPOLYSACCHARIDOSIS IV
     Dosage: 2 MILLIGRAM/KILOGRAM, QW
     Route: 042
     Dates: start: 20190121
  2. GRAVOL [Concomitant]
     Active Substance: DIMENHYDRINATE
     Indication: VOMITING
  3. VIMIZIM [Suspect]
     Active Substance: ELOSULFASE ALFA
     Dosage: 2 MILLIGRAM/KILOGRAM, QW
     Route: 042
     Dates: start: 20151005, end: 20170616
  4. GRAVOL [Concomitant]
     Active Substance: DIMENHYDRINATE
     Indication: NAUSEA
     Dosage: UNK, PRN
  5. ACTONEL [Concomitant]
     Active Substance: RISEDRONATE SODIUM
     Indication: PRODUCT USED FOR UNKNOWN INDICATION
     Dosage: UNK, QW
     Route: 048
  6. VITAMIN D [Concomitant]
     Active Substance: VITAMIN D NOS
     Indication: PRODUCT USED FOR UNKNOWN INDICATION
     Dosage: 400 INTERNATIONAL UNIT, QD
     Route: 048

REACTIONS (3)
  - Aortic valve calcification [Not Recovered/Not Resolved]
  - Cardiac septal hypertrophy [Not Recovered/Not Resolved]
  - Mitral valve thickening [Not Recovered/Not Resolved]
